FAERS Safety Report 20477447 (Version 2)
Quarter: 2022Q1

REPORT INFORMATION
  Report Type: Report from Study
  Country: IT (occurrence: IT)
  Receive Date: 20220215
  Receipt Date: 20220304
  Transmission Date: 20220423
  Serious: Yes (Death)
  Sender: FDA-Public Use
  Company Number: IT-ABBVIE-22K-083-4277906-00

PATIENT
  Age: 81 Year
  Sex: Male

DRUGS (2)
  1. CARBIDOPA\LEVODOPA [Suspect]
     Active Substance: CARBIDOPA\LEVODOPA
     Indication: Parkinson^s disease
     Dosage: DAILY DOSE: 1266 MG; PUMP SETTING: MD: 4+3 CR: 4,1 (13H), ED: 3;?20 MG/ML 5 MG/ML
     Route: 050
     Dates: start: 20190320, end: 20211101
  2. CARBIDOPA\LEVODOPA [Suspect]
     Active Substance: CARBIDOPA\LEVODOPA

REACTIONS (1)
  - Renal failure [Fatal]
